FAERS Safety Report 7348859-2 (Version None)
Quarter: 2011Q1

REPORT INFORMATION
  Report Type: 
  Country: None (occurrence: None)
  Receive Date: 20110314
  Receipt Date: 20110304
  Transmission Date: 20110831
  Serious: Yes (Hospitalization)
  Sender: FDA-Public Use
  Company Number: DE-ELI_LILLY_AND_COMPANY-DE201103001469

PATIENT
  Sex: Female

DRUGS (4)
  1. ALPROSTADIL [Concomitant]
  2. CORTISONE [Concomitant]
  3. FORTEO [Suspect]
     Indication: OSTEOPOROSIS
     Dosage: UNK, UNKNOWN
     Route: 058
     Dates: start: 20100621
  4. MARCUMAR [Concomitant]

REACTIONS (1)
  - SKIN ULCER [None]
